FAERS Safety Report 8052315-6 (Version None)
Quarter: 2012Q1

REPORT INFORMATION
  Report Type: 
  Country: None (occurrence: None)
  Receive Date: 20120118
  Receipt Date: 20120110
  Transmission Date: 20120608
  Serious: Yes (Other)
  Sender: FDA-Public Use
  Company Number: NO-JNJFOC-20120103526

PATIENT
  Sex: Female

DRUGS (1)
  1. REMICADE [Suspect]
     Indication: PRODUCT USED FOR UNKNOWN INDICATION
     Route: 042
     Dates: start: 20120104, end: 20120104

REACTIONS (5)
  - INFUSION RELATED REACTION [None]
  - PAIN IN EXTREMITY [None]
  - ASTHENIA [None]
  - FEELING COLD [None]
  - CHILLS [None]
